FAERS Safety Report 6302125-2 (Version None)
Quarter: 2009Q3

REPORT INFORMATION
  Report Type: 
  Country: None (occurrence: None)
  Receive Date: 20090807
  Receipt Date: 20090728
  Transmission Date: 20100115
  Serious: Yes (Hospitalization)
  Sender: FDA-Public Use
  Company Number: SG-GENENTECH-288058

PATIENT
  Age: 62 Year
  Sex: Female

DRUGS (1)
  1. ACTIVASE [Suspect]
     Indication: ISCHAEMIC STROKE
     Route: 042

REACTIONS (4)
  - BACK PAIN [None]
  - HAEMATOMA [None]
  - MUSCULOSKELETAL PAIN [None]
  - SPINAL CORD OEDEMA [None]
